FAERS Safety Report 7198901-7 (Version None)
Quarter: 2010Q4

REPORT INFORMATION
  Report Type: 
  Country: None (occurrence: None)
  Receive Date: 20101227
  Receipt Date: 20101220
  Transmission Date: 20110411
  Serious: Yes (Disabling, Other)
  Sender: FDA-Public Use
  Company Number: FR-SANOFI-AVENTIS-2010SA077121

PATIENT
  Age: 57 Year
  Sex: Female

DRUGS (5)
  1. KETEK [Suspect]
     Indication: COUGH
     Route: 048
     Dates: start: 20070101, end: 20070101
  2. KETEK [Suspect]
     Indication: PERTUSSIS
     Route: 048
     Dates: start: 20070101, end: 20070101
  3. KETEK [Suspect]
     Route: 048
     Dates: start: 20070101, end: 20070101
  4. KETEK [Suspect]
     Route: 048
     Dates: start: 20070101, end: 20070101
  5. ANTIBIOTICS [Concomitant]
     Indication: COUGH
     Route: 065
     Dates: start: 20070101, end: 20070101

REACTIONS (3)
  - CHROMATURIA [None]
  - LOSS OF CONSCIOUSNESS [None]
  - VISION BLURRED [None]
